FAERS Safety Report 9258734 (Version 1)
Quarter: 2013Q2

REPORT INFORMATION
  Report Type: Spontaneous
  Country: DK (occurrence: DK)
  Receive Date: 20130426
  Receipt Date: 20130426
  Transmission Date: 20140414
  Serious: Yes (Hospitalization)
  Sender: FDA-Public Use
  Company Number: DK-ASTRAZENECA-2013SE26078

PATIENT
  Age: 48 Year
  Sex: Female

DRUGS (2)
  1. SEROQUEL [Suspect]
     Indication: MANIA
     Route: 048
     Dates: start: 200505
  2. LITAREX [Suspect]
     Indication: MANIA
     Route: 065
     Dates: start: 200505

REACTIONS (6)
  - Cardiac failure [Unknown]
  - Chest pain [Unknown]
  - Congestive cardiomyopathy [Unknown]
  - Mania [Unknown]
  - Dyspnoea [Unknown]
  - Drug ineffective [Unknown]
